FAERS Safety Report 13535640 (Version 1)
Quarter: 2017Q2

REPORT INFORMATION
  Report Type: Spontaneous
  Country: SE (occurrence: SE)
  Receive Date: 20170511
  Receipt Date: 20170511
  Transmission Date: 20170830
  Serious: Yes (Hospitalization)
  Sender: FDA-Public Use
  Company Number: SE-PFIZER INC-2017202941

PATIENT
  Age: 34 Year
  Sex: Male

DRUGS (7)
  1. CEFOTAXIM VILLERTON [Concomitant]
  2. CATAPRESAN /00171101/ [Concomitant]
     Active Substance: CLONIDINE
  3. XERODENT /06365801/ [Concomitant]
  4. NALOXON B. BRAUN [Concomitant]
  5. LYRICA [Suspect]
     Active Substance: PREGABALIN
     Dosage: 2400 MG, UNK
     Route: 048
     Dates: start: 20150319
  6. THERALEN [Concomitant]
     Active Substance: TRIMEPRAZINE
  7. LANEXAT [Concomitant]

REACTIONS (4)
  - Depressed level of consciousness [Unknown]
  - Head injury [Unknown]
  - Fall [Unknown]
  - Toxicity to various agents [Unknown]

NARRATIVE: CASE EVENT DATE: 20150319
